FAERS Safety Report 10379538 (Version 3)
Quarter: 2014Q3

REPORT INFORMATION
  Report Type: Spontaneous
  Country: US (occurrence: US)
  Receive Date: 20140812
  Receipt Date: 20140922
  Transmission Date: 20150326
  Serious: Yes (Other)
  Sender: FDA-Public Use
  Company Number: US-GILEAD-2014-0111492

PATIENT
  Age: 66 Year
  Sex: Male

DRUGS (2)
  1. LETAIRIS [Suspect]
     Active Substance: AMBRISENTAN
     Indication: PRODUCT USED FOR UNKNOWN INDICATION
     Dosage: 10 MG, QD
     Route: 065
     Dates: start: 20120604
  2. REVATIO [Concomitant]
     Active Substance: SILDENAFIL CITRATE

REACTIONS (6)
  - Cardiac failure congestive [Not Recovered/Not Resolved]
  - Oedema peripheral [Unknown]
  - Dyspnoea exertional [Not Recovered/Not Resolved]
  - Asthenia [Unknown]
  - Fluid retention [Not Recovered/Not Resolved]
  - Condition aggravated [Not Recovered/Not Resolved]

NARRATIVE: CASE EVENT DATE: 201408
